FAERS Safety Report 17277016 (Version 1)
Quarter: 2020Q1

REPORT INFORMATION
  Report Type: Spontaneous
  Country: US (occurrence: US)
  Receive Date: 20191226
  Receipt Date: 20191226
  Transmission Date: 20200409
  Serious: No
  Sender: FDA-Public Use
  Company Number: None

PATIENT
  Age: 57 Year
  Sex: Female
  Weight: 81.3 kg

DRUGS (2)
  1. INTERFERON DOSE UNKNOWN [Suspect]
     Active Substance: INTERFERON
     Indication: CHRONIC HEPATITIS C
  2. RIBAVIRIN DOSE UNKNOWN [Suspect]
     Active Substance: RIBAVIRIN

REACTIONS (2)
  - Drug ineffective [None]
  - Drug intolerance [None]
